FAERS Safety Report 25985741 (Version 1)
Quarter: 2025Q4

REPORT INFORMATION
  Report Type: Spontaneous
  Country: EU (occurrence: EU)
  Receive Date: 20251031
  Receipt Date: 20251031
  Transmission Date: 20260118
  Serious: Yes (Hospitalization, Other)
  Sender: NOVO NORDISK
  Company Number: EU-NOVOPROD-1541719

PATIENT
  Age: 44 Year
  Sex: Female

DRUGS (3)
  1. WEGOVY [Suspect]
     Active Substance: SEMAGLUTIDE
     Indication: Obesity
     Dosage: UNK
  2. LEVOTHYROXINE SODIUM [Concomitant]
     Active Substance: LEVOTHYROXINE SODIUM
     Indication: Hypothyroidism
     Dosage: 100 MG
     Route: 048
     Dates: start: 2020
  3. METOPROLOL [Concomitant]
     Active Substance: METOPROLOL
     Indication: Hypertension
     Dosage: 23.25MG
     Route: 048
     Dates: start: 2020

REACTIONS (4)
  - Cystitis [Unknown]
  - Pancreatitis acute [Recovered/Resolved]
  - Cholelithiasis [Unknown]
  - Product communication issue [Unknown]

NARRATIVE: CASE EVENT DATE: 20240901
